FAERS Safety Report 7417676-7 (Version None)
Quarter: 2011Q2

REPORT INFORMATION
  Report Type: 
  Country: None (occurrence: None)
  Receive Date: 20110412
  Receipt Date: 20110412
  Transmission Date: 20111010
  Serious: Yes (Disabling)
  Sender: FDA-Public Use
  Company Number: None

PATIENT
  Age: 70 Year
  Sex: Female
  Weight: 65.7716 kg

DRUGS (2)
  1. RELAFEN [Suspect]
     Indication: INFLAMMATION
     Dosage: 750 MG. 1 PILL 2 TIMES DAILY
     Dates: start: 20100122, end: 20100513
  2. PLAQUENIL [Suspect]
     Indication: RHEUMATOID ARTHRITIS
     Dosage: 200 MG. - 1 PILL 2 TIMES DAILY
     Dates: start: 20100326, end: 20100513

REACTIONS (5)
  - NAUSEA [None]
  - MUSCLE SPASMS [None]
  - VOMITING [None]
  - DIARRHOEA [None]
  - FLUSHING [None]
